FAERS Safety Report 5063864-7 (Version None)
Quarter: 2006Q3

REPORT INFORMATION
  Report Type: 
  Country: None (occurrence: None)
  Receive Date: 20060724
  Receipt Date: 20060710
  Transmission Date: 20061208
  Serious: Yes (Hospitalization, Other)
  Sender: FDA-Public Use
  Company Number: 2005047903

PATIENT
  Age: 77 Year
  Sex: Female
  Weight: 58.0604 kg

DRUGS (8)
  1. DETROL [Suspect]
     Indication: HYPERTONIC BLADDER
     Dosage: 4 MG (2 MG, 2 IN 1 D), ORAL
     Route: 048
     Dates: start: 20030101
  2. DETROL LA [Suspect]
     Indication: DRUG USE FOR UNKNOWN INDICATION
     Dosage: FREQUENCY DAILY INTERVAL:  EVERY DAY)
  3. CLOPIDOGREL BISULFATE [Concomitant]
  4. POTASSIUM CHLORIDE [Concomitant]
  5. INDAPAMIDE [Concomitant]
  6. FOLIC ACID [Concomitant]
  7. ESTROPIPATE [Concomitant]
  8. EUGYNON (ETHINYLESTRADIOL, LEVONORGESTREL) [Concomitant]

REACTIONS (14)
  - BLOOD PRESSURE FLUCTUATION [None]
  - COLECTOMY [None]
  - COLON NEOPLASM [None]
  - CONSTIPATION [None]
  - DEHYDRATION [None]
  - DRUG INEFFECTIVE [None]
  - DRY MOUTH [None]
  - FATIGUE [None]
  - HYPOTENSION [None]
  - MICTURITION URGENCY [None]
  - MIDDLE INSOMNIA [None]
  - NOCTURIA [None]
  - RETCHING [None]
  - VOMITING [None]
